FAERS Safety Report 8127450-4 (Version None)
Quarter: 2011Q4

REPORT INFORMATION
  Report Type: 
  Country: None (occurrence: None)
  Receive Date: 20111227
  Receipt Date: 20110919
  Transmission Date: 20120403
  Serious: No
  Sender: FDA-Public Use
  Company Number: PHEH2011US02015

PATIENT
  Age: 52 Year
  Sex: Female
  Weight: 156 kg

DRUGS (7)
  1. TOPAMAX [Concomitant]
  2. CITALOPRAM HYDROBROMIDE [Concomitant]
  3. VITAMIN TAB [Concomitant]
  4. DETROL [Concomitant]
  5. ASPIRIN [Concomitant]
  6. GILENYA [Suspect]
     Indication: MULTIPLE SCLEROSIS
     Dosage: 0.5 MG, QD, ORAL ; 1MG, DAILY, ORAL
     Route: 048
     Dates: start: 20110706
  7. VICODIN [Concomitant]

REACTIONS (4)
  - FATIGUE [None]
  - BRADYCARDIA [None]
  - HEADACHE [None]
  - OVERDOSE [None]
